FAERS Safety Report 7961840-5 (Version None)
Quarter: 2011Q4

REPORT INFORMATION
  Report Type: 
  Country: None (occurrence: None)
  Receive Date: 20111207
  Receipt Date: 20111207
  Transmission Date: 20120403
  Serious: Yes (Other)
  Sender: FDA-Public Use
  Company Number: None

PATIENT
  Age: 46 Year
  Sex: Female
  Weight: 46.266 kg

DRUGS (2)
  1. SEPTOCAINE [Suspect]
     Indication: ARTIFICIAL CROWN PROCEDURE
     Dates: start: 20091222, end: 20100607
  2. SEPTOCAINE [Suspect]
     Indication: TOOTH EXTRACTION
     Dates: start: 20091222, end: 20100607

REACTIONS (16)
  - HYPOAESTHESIA [None]
  - BLISTER [None]
  - BURNING SENSATION [None]
  - LOSS OF CONSCIOUSNESS [None]
  - FEELING ABNORMAL [None]
  - PARALYSIS [None]
  - VISION BLURRED [None]
  - MEMORY IMPAIRMENT [None]
  - SPEECH DISORDER [None]
  - TONGUE PARALYSIS [None]
  - MUSCLE TIGHTNESS [None]
  - PARAESTHESIA [None]
  - VIITH NERVE PARALYSIS [None]
  - THROAT IRRITATION [None]
  - JOINT SWELLING [None]
  - SINUS DISORDER [None]
